FAERS Safety Report 10975640 (Version 1)
Quarter: 2015Q2

REPORT INFORMATION
  Report Type: Spontaneous
  Country: US (occurrence: US)
  Receive Date: 20150401
  Receipt Date: 20150401
  Transmission Date: 20150821
  Serious: No
  Sender: FDA-Public Use
  Company Number: US-GLAXOSMITHKLINE-US2015GSK043388

PATIENT
  Sex: Male
  Weight: 77.98 kg

DRUGS (21)
  1. TAFINLAR [Suspect]
     Active Substance: DABRAFENIB MESYLATE
     Indication: MALIGNANT MELANOMA
     Dosage: 75 MG, BID
     Route: 048
     Dates: start: 20150328
  2. ONDANSETRON HCL [Concomitant]
     Active Substance: ONDANSETRON HYDROCHLORIDE
  3. BENADRYL ALLERGY [Concomitant]
     Active Substance: DIPHENHYDRAMINE HYDROCHLORIDE
  4. TRIAMCINOLONE ACETONIDE. [Concomitant]
     Active Substance: TRIAMCINOLONE ACETONIDE
  5. MORPHINE SULFATE ER [Concomitant]
     Active Substance: MORPHINE SULFATE
  6. TAMSULOSIN HYDROCHLORIDE. [Concomitant]
     Active Substance: TAMSULOSIN HYDROCHLORIDE
  7. SIMVASTATIN. [Concomitant]
     Active Substance: SIMVASTATIN
  8. GAS-X [Concomitant]
     Active Substance: DIMETHICONE
  9. PROCHLORPERAZINE MALEATE. [Concomitant]
     Active Substance: PROCHLORPERAZINE MALEATE
  10. SENOKOT [Concomitant]
     Active Substance: SENNOSIDES
  11. MIRALAX [Concomitant]
     Active Substance: POLYETHYLENE GLYCOL 3350
  12. ACETAMINOPHEN + CODEINE [Concomitant]
  13. ETODOLAC. [Concomitant]
     Active Substance: ETODOLAC
  14. CRANBERRY TABLETS [Concomitant]
  15. YERVOY [Concomitant]
     Active Substance: IPILIMUMAB
  16. HYDROXYZINE HYDROCHLORIDE. [Concomitant]
     Active Substance: HYDROXYZINE HYDROCHLORIDE
  17. MELOXICAM. [Concomitant]
     Active Substance: MELOXICAM
  18. TOPROL XL [Concomitant]
     Active Substance: METOPROLOL SUCCINATE
  19. GABAPENTIN. [Concomitant]
     Active Substance: GABAPENTIN
  20. GENERLAC [Concomitant]
     Active Substance: LACTULOSE
  21. MULTAQ [Concomitant]
     Active Substance: DRONEDARONE

REACTIONS (1)
  - Pruritus generalised [Unknown]
